FAERS Safety Report 23286930 (Version 10)
Quarter: 2024Q3

REPORT INFORMATION
  Report Type: Spontaneous
  Country: CL (occurrence: CL)
  Receive Date: 20231212
  Receipt Date: 20240815
  Transmission Date: 20241016
  Serious: Yes (Life-Threatening, Other)
  Sender: SANDOZ
  Company Number: CL-Novartis Pharma AG-NVSC2023CL132738

PATIENT
  Age: 66 Year
  Sex: Female

DRUGS (14)
  1. KISQALI [Suspect]
     Active Substance: RIBOCICLIB
     Dosage: 600 MG, QD
     Route: 048
     Dates: start: 20230530
  2. KISQALI [Suspect]
     Active Substance: RIBOCICLIB
     Dosage: 600 MG, QD
     Route: 048
     Dates: start: 20230530
  3. KISQALI [Suspect]
     Active Substance: RIBOCICLIB
     Dosage: 600 MG, QD
     Route: 048
     Dates: start: 20230530
  4. KISQALI [Suspect]
     Active Substance: RIBOCICLIB
     Dosage: 600 MG, QD
     Route: 048
     Dates: start: 20230530
  5. KISQALI [Suspect]
     Active Substance: RIBOCICLIB
     Dosage: 600 MG, QD
     Route: 048
     Dates: start: 20230530
  6. KISQALI [Suspect]
     Active Substance: RIBOCICLIB
     Dosage: 600 MG, QD
     Route: 048
     Dates: start: 20230530
  7. KISQALI [Suspect]
     Active Substance: RIBOCICLIB
     Indication: Breast cancer stage IV
     Dosage: 600 MG, QD
     Route: 048
     Dates: start: 20230530
  8. KISQALI [Suspect]
     Active Substance: RIBOCICLIB
     Dosage: 600 MG, QD
     Route: 048
     Dates: start: 20230531
  9. LETROZOLE [Suspect]
     Active Substance: LETROZOLE
     Indication: Breast cancer stage IV
     Dosage: UNK
     Route: 065
  10. LETROZOLE [Suspect]
     Active Substance: LETROZOLE
     Indication: Hepatic cancer
  11. LETROZOLE [Suspect]
     Active Substance: LETROZOLE
     Indication: Hepatic cancer
  12. LETROZOLE [Suspect]
     Active Substance: LETROZOLE
     Indication: Metastases to bone
  13. LETROZOLE [Suspect]
     Active Substance: LETROZOLE
     Indication: Metastases to bone
  14. ZOLEDRONIC ACID [Suspect]
     Active Substance: ZOLEDRONIC ACID
     Indication: Bone disorder
     Dosage: 4 MG, Q3MO
     Route: 065

REACTIONS (25)
  - Critical illness [Unknown]
  - Metastases to bone [Unknown]
  - Blindness [Unknown]
  - Hepatitis [Unknown]
  - Malignant neoplasm progression [Unknown]
  - Breast cancer metastatic [Unknown]
  - Visual impairment [Unknown]
  - Ligament sprain [Unknown]
  - Decreased immune responsiveness [Unknown]
  - Laboratory test abnormal [Unknown]
  - Dysstasia [Unknown]
  - Illness [Unknown]
  - Gait disturbance [Unknown]
  - Feeling abnormal [Unknown]
  - Memory impairment [Unknown]
  - Nervousness [Unknown]
  - Cough [Unknown]
  - Pain in extremity [Unknown]
  - Nasopharyngitis [Unknown]
  - Influenza [Unknown]
  - Dizziness [Recovering/Resolving]
  - Nausea [Recovered/Resolved]
  - Pyrexia [Unknown]
  - Malaise [Unknown]
  - Inappropriate schedule of product administration [Unknown]
